FAERS Safety Report 4767019-2 (Version None)
Quarter: 2005Q3

REPORT INFORMATION
  Report Type: 
  Country: None (occurrence: None)
  Receive Date: 20050908
  Receipt Date: 20050812
  Transmission Date: 20060218
  Serious: Yes (Other)
  Sender: FDA-Public Use
  Company Number: 6016656

PATIENT
  Age: 93 Year
  Sex: Female

DRUGS (6)
  1. DAPA-TABS (2.5 MG, TABLET) (INDAPAMIDE) [Suspect]
     Indication: ESSENTIAL HYPERTENSION
     Dosage: 2,5 MG (2,5 MG,1 D), OCCLUSIVE
     Dates: start: 20030920
  2. TRITACE(2,5 MG, TABLET) (RAMIPRIL) [Suspect]
     Indication: ESSENTIAL HYPERTENSION
     Dosage: 2,5 MG (2,5 MG,1 D), OCCLUSIVE
     Dates: start: 20030826, end: 20030920
  3. QUININE SULFATE [Concomitant]
  4. PRAVASTATIN [Concomitant]
  5. ASPIRIN [Concomitant]
  6. TAMOXIFEN (TAMOXIFEN) [Concomitant]

REACTIONS (3)
  - ANGIONEUROTIC OEDEMA [None]
  - HYPONATRAEMIA [None]
  - MYOCARDIAL INFARCTION [None]
